FAERS Safety Report 9263053 (Version 2)
Quarter: 2013Q2

REPORT INFORMATION
  Report Type: Spontaneous
  Country: JP (occurrence: None)
  Receive Date: 20130426
  Receipt Date: 20130517
  Transmission Date: 20140414
  Serious: Yes (Hospitalization)
  Sender: FDA-Public Use
  Company Number: JP-011525

PATIENT
  Age: 77 Year
  Sex: Male

DRUGS (7)
  1. DEGARELIX [Suspect]
     Indication: PROSTATE CANCER
     Dosage: ONSE A MONTH SC.
     Route: 058
     Dates: start: 20130206, end: 20130206
  2. TRAMADOL HYDROCHLORIDE AND ACETAMINOPHEN [Concomitant]
  3. NEXIUM [Concomitant]
  4. CASODEX [Concomitant]
  5. TAVEGYL [Concomitant]
  6. CALCIUM LACTATE [Concomitant]
  7. ZOMETA [Concomitant]

REACTIONS (1)
  - Paraplegia [None]
